FAERS Safety Report 11882611 (Version 1)
Quarter: 2015Q4

REPORT INFORMATION
  Report Type: Spontaneous
  Country: None (occurrence: None)
  Receive Date: 20151230
  Receipt Date: 20151230
  Transmission Date: 20160305
  Serious: Yes (Disabling)
  Sender: FDA-Public Use
  Company Number: None

PATIENT
  Age: 29 Year
  Sex: Male
  Weight: 83.92 kg

DRUGS (3)
  1. PROSCAR [Suspect]
     Active Substance: FINASTERIDE
     Indication: ALOPECIA
     Dosage: QUARTER OF A PILL ONCE DAILY TAKEN BY MOUTH
     Route: 048
     Dates: start: 20151120, end: 20151206
  2. MEN^S MULTI-VITAMIN [Concomitant]
  3. PROBIOTICS [Concomitant]
     Active Substance: PROBIOTICS NOS

REACTIONS (12)
  - Testicular pain [None]
  - Prostatic pain [None]
  - Penile size reduced [None]
  - Depression [None]
  - Muscle tightness [None]
  - Body temperature fluctuation [None]
  - Penis disorder [None]
  - Fatigue [None]
  - Anxiety [None]
  - Loss of libido [None]
  - Erectile dysfunction [None]
  - Insomnia [None]

NARRATIVE: CASE EVENT DATE: 20151201
